FAERS Safety Report 5707783-9 (Version None)
Quarter: 2008Q2

REPORT INFORMATION
  Report Type: 
  Country: None (occurrence: None)
  Receive Date: 20080417
  Receipt Date: 20080414
  Transmission Date: 20081010
  Serious: Yes (Hospitalization)
  Sender: FDA-Public Use
  Company Number: FR-BRISTOL-MYERS SQUIBB COMPANY-14150924

PATIENT
  Age: 54 Year
  Sex: Male

DRUGS (2)
  1. COUMADIN [Suspect]
     Indication: PULMONARY EMBOLISM
     Dates: start: 20070501, end: 20070628
  2. PLAVIX [Suspect]
     Indication: PULMONARY EMBOLISM
     Dates: start: 20070301, end: 20070628

REACTIONS (2)
  - FALL [None]
  - SUBDURAL HAEMATOMA [None]
